FAERS Safety Report 6420583-X (Version None)
Quarter: 2009Q4

REPORT INFORMATION
  Report Type: 
  Country: None (occurrence: None)
  Receive Date: 20091027
  Receipt Date: 20091020
  Transmission Date: 20100525
  Serious: Yes (Death)
  Sender: FDA-Public Use
  Company Number: 2009US003822

PATIENT
  Age: 63 Year
  Sex: Male

DRUGS (3)
  1. PROGRAF [Suspect]
     Indication: HEART TRANSPLANT
  2. PREDNISONE TAB [Suspect]
     Indication: HEART TRANSPLANT
     Dosage: 25 MG, UID/QD
  3. MYCOPHENOLATE MOFETIL [Suspect]
     Indication: HEART TRANSPLANT

REACTIONS (8)
  - ACUTE RESPIRATORY DISTRESS SYNDROME [None]
  - HYPOTENSION [None]
  - INTERSTITIAL LUNG DISEASE [None]
  - LYMPHOPENIA [None]
  - MYCOBACTERIAL INFECTION [None]
  - PNEUMONIA BACTERIAL [None]
  - PULMONARY ALVEOLAR HAEMORRHAGE [None]
  - STRONGYLOIDIASIS [None]
